FAERS Safety Report 5729495-8 (Version None)
Quarter: 2008Q2

REPORT INFORMATION
  Report Type: 
  Country: None (occurrence: None)
  Receive Date: 20080506
  Receipt Date: 20080425
  Transmission Date: 20081010
  Serious: Yes (Other)
  Sender: FDA-Public Use
  Company Number: US-ELI_LILLY_AND_COMPANY-US200803006564

PATIENT
  Sex: Male

DRUGS (7)
  1. HUMALOG MIX 75/25 [Suspect]
     Dosage: UNK, UNK
     Dates: start: 20080101
  2. PREDNISONE [Concomitant]
  3. ATENOLOL [Concomitant]
  4. CLONAZEPAM [Concomitant]
  5. LEVOXYL [Concomitant]
  6. DIGOXIN [Concomitant]
  7. PROCRIT [Concomitant]

REACTIONS (6)
  - ERYTHEMA [None]
  - INJECTION SITE HAEMORRHAGE [None]
  - PRURITUS [None]
  - PURPURA [None]
  - RASH [None]
  - SKIN CANCER [None]
